FAERS Safety Report 4370711-5 (Version None)
Quarter: 2004Q2

REPORT INFORMATION
  Report Type: 
  Country: None (occurrence: None)
  Receive Date: 20040604
  Receipt Date: 20040406
  Transmission Date: 20050107
  Serious: Yes (Life-Threatening, Hospitalization, Other)
  Sender: FDA-Public Use
  Company Number: 200410752DE

PATIENT
  Age: 74 Year
  Sex: Female
  Weight: 65 kg

DRUGS (7)
  1. ARAVA [Suspect]
     Indication: RHEUMATOID ARTHRITIS
     Route: 048
     Dates: start: 20020201, end: 20040101
  2. SYNACTHEN [Suspect]
     Indication: RHEUMATOID ARTHRITIS
     Route: 048
     Dates: start: 19970101
  3. IMBUN [Suspect]
     Indication: RHEUMATOID ARTHRITIS
     Dosage: DOSE: UP TO 15000
     Route: 048
     Dates: start: 19970101
  4. RANITIDINE [Concomitant]
     Indication: RHEUMATOID ARTHRITIS
     Route: 048
     Dates: start: 19970101
  5. CALCIUM [Concomitant]
     Indication: RHEUMATOID ARTHRITIS
     Route: 048
     Dates: start: 19970101
  6. VITAMIN D [Concomitant]
     Indication: RHEUMATOID ARTHRITIS
     Dates: start: 19970101
  7. METHOTREXATE [Concomitant]
     Indication: RHEUMATOID ARTHRITIS
     Route: 042
     Dates: start: 19970101, end: 20030701

REACTIONS (2)
  - INTESTINAL HAEMORRHAGE [None]
  - SHOCK HAEMORRHAGIC [None]
